FAERS Safety Report 5893588-5 (Version None)
Quarter: 2008Q3

REPORT INFORMATION
  Report Type: 
  Country: None (occurrence: None)
  Receive Date: 20080923
  Receipt Date: 20080915
  Transmission Date: 20090109
  Serious: Yes (Other)
  Sender: FDA-Public Use
  Company Number: AU-WYE-H04437508

PATIENT
  Sex: Male

DRUGS (1)
  1. AMIODARONE HCL [Suspect]
     Indication: VENTRICULAR TACHYCARDIA
     Route: 042
     Dates: start: 20080528, end: 20080529

REACTIONS (3)
  - INJECTION SITE INFECTION [None]
  - INJECTION SITE PHLEBITIS [None]
  - INJECTION SITE THROMBOSIS [None]
